FAERS Safety Report 10353383 (Version 2)
Quarter: 2014Q4

REPORT INFORMATION
  Report Type: Spontaneous
  Country: IT (occurrence: IT)
  Receive Date: 20140731
  Receipt Date: 20141016
  Transmission Date: 20150528
  Serious: Yes (Death, Other)
  Sender: FDA-Public Use
  Company Number: IT-ALEXION PHARMACEUTICALS INC.-A201402307

PATIENT

DRUGS (2)
  1. SOLIRIS [Suspect]
     Active Substance: ECULIZUMAB
     Indication: OFF LABEL USE
     Dosage: 1200 MG, SINGLE
     Route: 042
     Dates: start: 20140602, end: 20140602
  2. SOLIRIS [Suspect]
     Active Substance: ECULIZUMAB
     Indication: ANTIPHOSPHOLIPID SYNDROME
     Dosage: 900 MG, SINGLE
     Route: 042
     Dates: start: 20140520, end: 20140520

REACTIONS (3)
  - Multi-organ failure [Fatal]
  - Off label use [Unknown]
  - Nervous system disorder [Fatal]

NARRATIVE: CASE EVENT DATE: 20140505
